FAERS Safety Report 13163351 (Version 7)
Quarter: 2018Q2

REPORT INFORMATION
  Report Type: Report from Study
  Country: US (occurrence: US)
  Receive Date: 20170130
  Receipt Date: 20180501
  Transmission Date: 20180711
  Serious: Yes (Death, Hospitalization, Other)
  Sender: FDA-Public Use
  Company Number: US-PFIZER INC-2017027222

PATIENT
  Age: 8 Year
  Sex: Male
  Weight: 19 kg

DRUGS (14)
  1. VITAMIN D [Concomitant]
     Active Substance: CHOLECALCIFEROL
     Indication: SUPPLEMENTATION THERAPY
     Dosage: 400 IU, DAILY
     Route: 048
  2. COLACE [Concomitant]
     Active Substance: DOCUSATE SODIUM
     Indication: CONSTIPATION
     Dosage: 100 MG, DAILY
     Route: 048
     Dates: start: 20161222
  3. BACTRIM [Concomitant]
     Active Substance: SULFAMETHOXAZOLE\TRIMETHOPRIM
     Indication: PROPHYLAXIS
     Dosage: 400 MG/ 80 MG, EVENINGS OF SATURDAY AND SUNDAYS
     Route: 048
  4. ADVIL/MOTRIN [Concomitant]
     Indication: PAIN
     Dosage: 100 MG/ML, EVERY 6 HOURS
     Route: 048
  5. FLEXERIL [Concomitant]
     Active Substance: CYCLOBENZAPRINE HYDROCHLORIDE
     Indication: PAIN
     Dosage: 1.5 MG, EVERY 8 HOURS
     Route: 048
     Dates: start: 2016
  6. ATIVAN [Concomitant]
     Active Substance: LORAZEPAM
     Indication: ANXIETY
     Dosage: 1.5 MG, 3X/DAY
     Route: 048
  7. ZOFRAN [Concomitant]
     Active Substance: ONDANSETRON HYDROCHLORIDE
     Indication: NAUSEA
     Dosage: 4 MG, 2X/DAY
     Route: 048
  8. CHRONULAC [Concomitant]
     Active Substance: LACTULOSE
     Indication: CONSTIPATION
     Dosage: 10 GM/15 ML, NIGHTLY
     Route: 048
     Dates: start: 20161228, end: 20170127
  9. CRIZOTINIB [Suspect]
     Active Substance: CRIZOTINIB
     Indication: NEUROBLASTOMA
     Dosage: 220 MG, 2X/DAY
     Route: 048
     Dates: start: 20161221, end: 20170118
  10. MARINOL [Concomitant]
     Active Substance: DRONABINOL
     Indication: DECREASED APPETITE
     Dosage: 5 MG, 2X/DAY
     Route: 048
     Dates: start: 20161223
  11. HYDROMORPHONE HCL [Concomitant]
     Active Substance: HYDROMORPHONE HYDROCHLORIDE
     Indication: PAIN
     Dosage: 1.5 ML, EVERY 4 HOURS
     Route: 048
  12. GABAPENTIN. [Concomitant]
     Active Substance: GABAPENTIN
     Indication: PAIN
     Dosage: 25 MG IN AM AND 25 MG MIDDAY WITH 100 MG AT BEDTIME, 3X/DAY
     Route: 048
     Dates: start: 2016
  13. DOLOPHINE [Concomitant]
     Active Substance: METHADONE HYDROCHLORIDE
     Indication: PAIN
     Dosage: 5MG/5ML, EVERY 8 HOURS
     Route: 048
  14. DILAUDID [Concomitant]
     Active Substance: HYDROMORPHONE HYDROCHLORIDE
     Indication: PAIN
     Dosage: 2 ML, EVERY 3 HOURS AS NEEDED
     Route: 048
     Dates: start: 2016

REACTIONS (3)
  - Diarrhoea [Not Recovered/Not Resolved]
  - Cellulitis [Not Recovered/Not Resolved]
  - Pain [Recovered/Resolved]

NARRATIVE: CASE EVENT DATE: 20170117
